FAERS Safety Report 4449083-3 (Version None)
Quarter: 2004Q3

REPORT INFORMATION
  Report Type: 
  Country: None (occurrence: None)
  Receive Date: 20040909
  Receipt Date: 20040825
  Transmission Date: 20050211
  Serious: Yes (Life-Threatening, Hospitalization)
  Sender: FDA-Public Use
  Company Number: USA040876501

PATIENT
  Sex: Female

DRUGS (1)
  1. CYMBALTA [Suspect]
     Dates: start: 20040818

REACTIONS (2)
  - HYPONATRAEMIA [None]
  - NAUSEA [None]
